FAERS Safety Report 16685241 (Version 3)
Quarter: 2019Q3

REPORT INFORMATION
  Report Type: Spontaneous
  Country: NL (occurrence: NL)
  Receive Date: 20190808
  Receipt Date: 20190919
  Transmission Date: 20191004
  Serious: Yes (Life-Threatening, Hospitalization, Disabling)
  Sender: FDA-Public Use
  Company Number: NL-009507513-1908NLD002630

PATIENT
  Age: 64 Year
  Sex: Male
  Weight: 72 kg

DRUGS (24)
  1. MIRTAZAPINE. [Suspect]
     Active Substance: MIRTAZAPINE
     Indication: INSOMNIA
     Dosage: 1 DOSAGE FORM (11-JUN-2019 7.5 MG)
     Route: 048
     Dates: start: 20190611, end: 20190625
  2. ETORICOXIB. [Concomitant]
     Active Substance: ETORICOXIB
     Dosage: UNK
  3. DERMOVATE [Concomitant]
     Active Substance: CLOBETASOL
     Dosage: 1 DOSAGE FORM, QD (ONCE PER DAY 1)
  4. ZOPICLONE [Concomitant]
     Active Substance: ZOPICLONE
     Dosage: 7 MILLIGRAM, QD (ZOPICLONE RATIOPHARM 7.5MG; ONCE PER DAY 1)
  5. DULOXETINE HYDROCHLORIDE. [Concomitant]
     Active Substance: DULOXETINE HYDROCHLORIDE
     Dosage: 30 MILLIGRAM, QD (ONCE PER DAY 1)
  6. MAGNESIUM HYDROXIDE. [Concomitant]
     Active Substance: MAGNESIUM HYDROXIDE
     Dosage: 2 DOSAGE FORM, Q8H (3 TIMES PER DAY 2)
  7. TAMSULOSIN HYDROCHLORIDE. [Concomitant]
     Active Substance: TAMSULOSIN HYDROCHLORIDE
     Dosage: ONCE PER DAY 1; ^0.00^ MG, QD
  8. BUDESONIDE. [Concomitant]
     Active Substance: BUDESONIDE
     Dosage: BUDESONIDE NOSESPRAY 100 MICROGRAM/DOSE
  9. OXYCODONE [Concomitant]
     Active Substance: OXYCODONE
     Dosage: 10 MILLIGRAM, Q12H (2 TIMES PER DAY 1)
  10. PHYTONADIONE. [Concomitant]
     Active Substance: PHYTONADIONE
     Dosage: VITAMIN K DRINK, STRENGTH: 10 MILLIGRAM/MILLILITER
  11. PREDNISOLONE. [Concomitant]
     Active Substance: PREDNISOLONE
     Dosage: 5 MILLIGRAM, Q12H (PREDNISOLON CF 5MG; 2 TIMES PER DAY 1)
  12. CALCIUM CARBONATE (+) CHOLECALCIFEROL [Concomitant]
     Active Substance: CALCIUM CARBONATE\CHOLECALCIFEROL
     Dosage: 1 DOSAGE FORM, QD (CALCIUM CARBONATE/COLECALCIFEROL CHEWABLE TABLET, 1.25 GRAM/400 IE (500 MG CALCIU
  13. RANITIDINE. [Concomitant]
     Active Substance: RANITIDINE
     Dosage: 300 MILLIGRAM, Q12H (2 TIMES PER DAY 1)
  14. AMOXICILLIN (+) CLAVULANATE POTASSIUM [Concomitant]
     Active Substance: AMOXICILLIN\CLAVULANATE POTASSIUM
     Dosage: 1 DOSAGE FORM, Q8H (3 TIMES A DAY 1)
     Dates: start: 20190629, end: 20190706
  15. FLUCONAZOLE. [Interacting]
     Active Substance: FLUCONAZOLE
     Indication: INFECTION PROPHYLAXIS
     Dosage: 150 MILLIGRAM, QW (ONCE PER WEEK 1 CAPSULE)
     Route: 048
     Dates: start: 20181009
  16. SODIUM CHLORIDE. [Concomitant]
     Active Substance: SODIUM CHLORIDE
     Dosage: STRENGTH: 9 MILLIGRAM/MILLILITER, NATRIUM CHLORIDE
  17. TRAMADOL HYDROCHLORIDE. [Concomitant]
     Active Substance: TRAMADOL HYDROCHLORIDE
     Dosage: TRAMADOL CENTRAFARM 50 MG; IF NECESSARY 6 TIMES PER DAY 1
  18. POLYETHYLENE GLYCOL [Concomitant]
     Active Substance: POLYETHYLENE GLYCOLS
     Dosage: 1 DOSAGE FORM, Q8H (3 TIMES A DAY 1; MACROGOL/ZOUTEN DRANK)
  19. OXYNORM [Concomitant]
     Active Substance: OXYCODONE HYDROCHLORIDE
     Dosage: 10 MILLIGRAM (OXYNORM INSTANT ORODISPERSIBLE TABLET 10 MG; OXYCODON SMELT TABLET 10 MG; IF NECESSARY
  20. MIRTAZAPINE. [Interacting]
     Active Substance: MIRTAZAPINE
     Dosage: 15 MILLIGRAM (NOW SERIOUS 15 MG)
     Route: 048
     Dates: start: 20190626, end: 20190629
  21. AMLODIPINE [Concomitant]
     Active Substance: AMLODIPINE BESYLATE
     Dosage: 10 MILLIGRAM, QD (ONCE PER DAY 1)
  22. ALENDRONATE SODIUM. [Concomitant]
     Active Substance: ALENDRONATE SODIUM
     Dosage: 70 MILLIGRAM, QW (ONCE PER WEEK 1; ALENDRONIC ACID AUROBINDO 70MG)
  23. PRIVIGEN [Concomitant]
     Active Substance: HUMAN IMMUNOGLOBULIN G
     Dosage: PRIVIGEN FLUID FOR INFUSION 100MG/ML VIAL 100 ML, STRENGTH: 100 MILLIGRAM/MILLILITER
  24. EPINEPHRINE. [Concomitant]
     Active Substance: EPINEPHRINE
     Dosage: STRENGTH: 1 MILLIGRAM/MILLILITER

REACTIONS (5)
  - Body temperature decreased [Recovering/Resolving]
  - Feeling cold [Recovering/Resolving]
  - Hyperhidrosis [Recovering/Resolving]
  - Drug interaction [Recovering/Resolving]
  - Somnolence [Recovering/Resolving]

NARRATIVE: CASE EVENT DATE: 20190629
